FAERS Safety Report 4417901-0 (Version None)
Quarter: 2004Q2

REPORT INFORMATION
  Report Type: 
  Country: None (occurrence: None)
  Receive Date: 20040618
  Receipt Date: 20040325
  Transmission Date: 20050107
  Serious: Yes (Other)
  Sender: FDA-Public Use
  Company Number: US-SHR-04-023246

PATIENT
  Age: 70 Year
  Sex: Female

DRUGS (3)
  1. FLUDARA [Suspect]
     Dosage: 6 DOSES, INTRAVENOUS
     Route: 042
     Dates: start: 20010101, end: 20010101
  2. RITUXAN [Suspect]
     Dosage: 6 DOSES, INTRAVENOUS
     Route: 042
     Dates: start: 20010101, end: 20010101
  3. CYTOXAN [Suspect]
     Dosage: 6 DOSES
     Dates: start: 20010101, end: 20010101

REACTIONS (1)
  - PNEUMOCYSTIS CARINII INFECTION [None]
